FAERS Safety Report 22209059 (Version 1)
Quarter: 2023Q2

REPORT INFORMATION
  Report Type: Other
  Country: US (occurrence: US)
  Receive Date: 20230413
  Receipt Date: 20230413
  Transmission Date: 20230722
  Serious: Yes (Hospitalization)
  Sender: FDA-Public Use
  Company Number: US-TRAVERE-2022TVT00546

PATIENT
  Age: 5 Month
  Sex: Female

DRUGS (1)
  1. CHOLIC ACID [Suspect]
     Active Substance: CHOLIC ACID
     Indication: Jaundice neonatal
     Route: 048
     Dates: start: 20221010

REACTIONS (2)
  - Respiratory distress [Unknown]
  - Viral infection [Unknown]
